FAERS Safety Report 24232752 (Version 1)
Quarter: 2024Q3

REPORT INFORMATION
  Report Type: Spontaneous
  Country: US (occurrence: US)
  Receive Date: 20240821
  Receipt Date: 20240821
  Transmission Date: 20241017
  Serious: No
  Sender: UCB
  Company Number: US-UCBSA-2024024575

PATIENT
  Age: 46 Year
  Sex: Female

DRUGS (1)
  1. RYSTIGGO [Suspect]
     Active Substance: ROZANOLIXIZUMAB-NOLI
     Indication: Myasthenia gravis
     Dosage: ONCE WEEKLY X6 WEEKS, WITH 3 WEEKS OFF EACH CYCLE
     Dates: start: 20240424, end: 202405

REACTIONS (4)
  - Injection site erythema [Recovering/Resolving]
  - Rash [Recovering/Resolving]
  - Injection site irritation [Recovering/Resolving]
  - Injection site warmth [Recovering/Resolving]

NARRATIVE: CASE EVENT DATE: 20240508
